FAERS Safety Report 4987887-9 (Version None)
Quarter: 2006Q2

REPORT INFORMATION
  Report Type: 
  Country: None (occurrence: None)
  Receive Date: 20060424
  Receipt Date: 20060331
  Transmission Date: 20061013
  Serious: Yes (Other)
  Sender: FDA-Public Use
  Company Number: DE200604002611

PATIENT
  Age: 42 Year
  Sex: Female

DRUGS (1)
  1. YENTREVE [Suspect]
     Indication: STRESS INCONTINENCE
     Dosage: ORAL
     Route: 048

REACTIONS (1)
  - HYPERTENSION [None]
